FAERS Safety Report 8889348 (Version 1)
Quarter: 2012Q4

REPORT INFORMATION
  Report Type: Spontaneous
  Country: US (occurrence: None)
  Receive Date: 20121102
  Receipt Date: 20121102
  Transmission Date: 20130627
  Serious: Yes (Other)
  Sender: FDA-Public Use
  Company Number: None

PATIENT
  Age: 39 Year
  Sex: Female
  Weight: 106.6 kg

DRUGS (7)
  1. EFFEXOR XR [Suspect]
     Indication: DEPRESSION
     Dosage: 300 mg Daily po
     Route: 048
     Dates: start: 20110901, end: 20120901
  2. CYMBALTA 30 MG LILLY [Suspect]
     Dosage: 30 mg Daily po
     Route: 048
     Dates: start: 20120901, end: 20120905
  3. LEVOTHYROXINE [Concomitant]
  4. CLONAZEPAM [Concomitant]
  5. ZOLPIDEM [Concomitant]
  6. ESTROGEN [Concomitant]
  7. GABAPENTIN [Concomitant]

REACTIONS (2)
  - Serotonin syndrome [None]
  - Restless legs syndrome [None]
